FAERS Safety Report 14826215 (Version 1)
Quarter: 2018Q2

REPORT INFORMATION
  Report Type: Spontaneous
  Country: US (occurrence: US)
  Receive Date: 20180430
  Receipt Date: 20180430
  Transmission Date: 20180711
  Serious: No
  Sender: FDA-Public Use
  Company Number: US-PFIZER INC-2018170739

PATIENT
  Age: 44 Year
  Sex: Female

DRUGS (1)
  1. XELJANZ XR [Suspect]
     Active Substance: TOFACITINIB CITRATE
     Indication: ARTHRITIS
     Dosage: 11 MG, UNK

REACTIONS (10)
  - Pruritus [Recovered/Resolved]
  - Oropharyngeal pain [Unknown]
  - Pharyngeal erythema [Unknown]
  - Arthralgia [Unknown]
  - Acne [Unknown]
  - Weight increased [Unknown]
  - Blood pressure increased [Unknown]
  - Upper-airway cough syndrome [Unknown]
  - Joint swelling [Unknown]
  - Musculoskeletal stiffness [Unknown]

NARRATIVE: CASE EVENT DATE: 201803
